FAERS Safety Report 18863381 (Version 2)
Quarter: 2021Q1

REPORT INFORMATION
  Report Type: Report from Study
  Country: CA (occurrence: CA)
  Receive Date: 20210209
  Receipt Date: 20210217
  Transmission Date: 20210420
  Serious: Yes (Other)
  Sender: FDA-Public Use
  Company Number: CA-JNJFOC-20210120359

PATIENT
  Age: 44 Year
  Sex: Female
  Weight: 100 kg

DRUGS (1)
  1. REMICADE [Suspect]
     Active Substance: INFLIXIMAB
     Indication: COLITIS ULCERATIVE
     Route: 042

REACTIONS (5)
  - Precancerous condition [Unknown]
  - Breast cellulitis [Not Recovered/Not Resolved]
  - Basal cell carcinoma [Unknown]
  - Hypersomnia [Unknown]
  - Rosacea [Unknown]

NARRATIVE: CASE EVENT DATE: 2021
